FAERS Safety Report 7389045-X (Version None)
Quarter: 2011Q2

REPORT INFORMATION
  Report Type: 
  Country: None (occurrence: None)
  Receive Date: 20110401
  Receipt Date: 20110321
  Transmission Date: 20111010
  Serious: Yes (Other)
  Sender: FDA-Public Use
  Company Number: US-PERRIGO-11US002404

PATIENT
  Sex: Male
  Weight: 26.757 kg

DRUGS (5)
  1. VYVANSE [Concomitant]
     Indication: ATTENTION DEFICIT/HYPERACTIVITY DISORDER
     Dosage: UNK, DAILY
     Route: 048
     Dates: start: 20100901
  2. SINGULAIR [Concomitant]
     Indication: SEASONAL ALLERGY
     Dosage: UNK, DAILY
     Route: 048
     Dates: start: 20100301
  3. CLARINEX [Concomitant]
     Indication: SEASONAL ALLERGY
     Dosage: UNK, DAILY
     Route: 048
     Dates: start: 20080301, end: 20100301
  4. CONCERTA [Concomitant]
     Indication: ATTENTION DEFICIT/HYPERACTIVITY DISORDER
     Dosage: UNK, DAILY
     Route: 048
     Dates: start: 20090901, end: 20100901
  5. POLYETHYLENE GLYCOL 3350 17G 181 [Suspect]
     Indication: CONSTIPATION
     Dosage: 17 G, QD
     Route: 048
     Dates: start: 20090901

REACTIONS (8)
  - HAEMATOCHEZIA [None]
  - INCORRECT DRUG ADMINISTRATION DURATION [None]
  - FAECES HARD [None]
  - PAIN [None]
  - VOMITING [None]
  - OFF LABEL USE [None]
  - DIARRHOEA [None]
  - ABDOMINAL DISTENSION [None]
